FAERS Safety Report 7476599-8 (Version None)
Quarter: 2011Q2

REPORT INFORMATION
  Report Type: 
  Country: None (occurrence: None)
  Receive Date: 20110510
  Receipt Date: 20110510
  Transmission Date: 20111010
  Serious: Yes (Life-Threatening, Disabling, Other)
  Sender: FDA-Public Use
  Company Number: None

PATIENT
  Age: 45 Year
  Sex: Female
  Weight: 60.782 kg

DRUGS (1)
  1. LYRICA [Suspect]
     Indication: FIBROMYALGIA
     Dosage: 150MG 1 DAILY
     Dates: start: 20090629, end: 20110506

REACTIONS (13)
  - IMPAIRED DRIVING ABILITY [None]
  - BACK PAIN [None]
  - FEELING ABNORMAL [None]
  - NECK PAIN [None]
  - CHEST PAIN [None]
  - SUFFOCATION FEELING [None]
  - COGNITIVE DISORDER [None]
  - PHOTOPHOBIA [None]
  - MUSCULOSKELETAL PAIN [None]
  - ROAD TRAFFIC ACCIDENT [None]
  - COLD SWEAT [None]
  - HYPERACUSIS [None]
  - OCULAR HYPERAEMIA [None]
